FAERS Safety Report 7338535-4 (Version None)
Quarter: 2011Q1

REPORT INFORMATION
  Report Type: 
  Country: None (occurrence: None)
  Receive Date: 20110308
  Receipt Date: 20110302
  Transmission Date: 20110831
  Serious: Yes (Death, Hospitalization)
  Sender: FDA-Public Use
  Company Number: US-PFIZER INC-2011045711

PATIENT
  Sex: Female

DRUGS (8)
  1. PREDNISONE [Concomitant]
  2. DOXORUBICIN HCL [Suspect]
     Indication: LEIOMYOSARCOMA METASTATIC
     Dosage: 75 MG/M2, DAY 1 OF A 21 DAY CYCLE
     Route: 042
     Dates: start: 20101020
  3. OXYCODONE [Concomitant]
  4. CLONAZEPAM [Concomitant]
  5. MIRTAZAPINE [Concomitant]
  6. PROCHLORPERAZINE [Concomitant]
  7. PDGFRA [Suspect]
     Indication: LEIOMYOSARCOMA METASTATIC
     Dosage: 15 MG/KG, DAYS 1+8 OF A 21 DAYS CYCLE
     Route: 042
     Dates: start: 20101020
  8. NEULASTA [Concomitant]
     Dosage: UNK
     Dates: start: 20101104

REACTIONS (2)
  - SMALL INTESTINAL OBSTRUCTION [None]
  - DEATH [None]
